FAERS Safety Report 15465527 (Version 2)
Quarter: 2018Q4

REPORT INFORMATION
  Report Type: Spontaneous
  Country: CR (occurrence: CR)
  Receive Date: 20181004
  Receipt Date: 20181009
  Transmission Date: 20190204
  Serious: Yes (Other)
  Sender: FDA-Public Use
  Company Number: CR-ROCHE-2193056

PATIENT
  Age: 83 Year
  Sex: Male

DRUGS (6)
  1. CLOPIDOGREL [Concomitant]
     Active Substance: CLOPIDOGREL BISULFATE
     Route: 065
  2. JANUMET [Concomitant]
     Active Substance: METFORMIN HYDROCHLORIDE\SITAGLIPTIN PHOSPHATE
     Dosage: FREQUENCY TWICE A DAY
     Route: 048
  3. ACTEMRA [Suspect]
     Active Substance: TOCILIZUMAB
     Indication: BEHCET^S SYNDROME
     Route: 042
     Dates: start: 20170830
  4. AMLODIPINE [Concomitant]
     Active Substance: AMLODIPINE BESYLATE
     Route: 048
  5. ZOPICLONA [Concomitant]
     Active Substance: ZOPICLONE
     Dosage: FREQUENCY HOURS OF SLEEP
     Route: 065
  6. VORTIOXETINE. [Concomitant]
     Active Substance: VORTIOXETINE
     Route: 048

REACTIONS (13)
  - Vomiting [Recovered/Resolved]
  - Asthenia [Unknown]
  - Hypoglobulinaemia [Unknown]
  - Influenza like illness [Unknown]
  - Off label use [Unknown]
  - Hepatic enzyme increased [Unknown]
  - Abdominal pain [Unknown]
  - Dizziness [Unknown]
  - Dehydration [Unknown]
  - Leukocytosis [Unknown]
  - Blood lactate dehydrogenase increased [Unknown]
  - Decreased appetite [Unknown]
  - Intentional product use issue [Unknown]

NARRATIVE: CASE EVENT DATE: 201710
